FAERS Safety Report 7170869-9 (Version None)
Quarter: 2010Q4

REPORT INFORMATION
  Report Type: 
  Country: None (occurrence: None)
  Receive Date: 20101206
  Receipt Date: 20101129
  Transmission Date: 20110411
  Serious: Yes (Other)
  Sender: FDA-Public Use
  Company Number: 20109364

PATIENT
  Sex: Female

DRUGS (1)
  1. LIORESAL [Suspect]
     Indication: MUSCLE SPASTICITY
     Dosage: DAILYU, INTRATHECAL
     Route: 037

REACTIONS (3)
  - COUGH [None]
  - DRUG INEFFECTIVE [None]
  - INTRACRANIAL HYPOTENSION [None]
